FAERS Safety Report 10089147 (Version 1)
Quarter: 2014Q2

REPORT INFORMATION
  Report Type: Spontaneous
  Country: US (occurrence: None)
  Receive Date: 20140418
  Receipt Date: 20140418
  Transmission Date: 20141212
  Serious: Yes (Hospitalization)
  Sender: FDA-Public Use
  Company Number: None

PATIENT
  Age: 85 Year
  Sex: Male
  Weight: 95.26 kg

DRUGS (1)
  1. MYRBETRIQ [Suspect]
     Indication: BLADDER DISORDER
     Dosage: 1  ONCE DAILY
     Dates: start: 20131114, end: 20131231

REACTIONS (6)
  - Nasopharyngitis [None]
  - Chills [None]
  - Urinary tract infection [None]
  - Blood pressure increased [None]
  - Palpitations [None]
  - Cardiac disorder [None]
